FAERS Safety Report 9807025 (Version 2)
Quarter: 2014Q1

REPORT INFORMATION
  Report Type: Report from Study
  Country: US (occurrence: US)
  Receive Date: 20140110
  Receipt Date: 20140204
  Transmission Date: 20141002
  Serious: Yes (Life-Threatening)
  Sender: FDA-Public Use
  Company Number: US-ROCHE-1331065

PATIENT
  Age: 71 Year
  Sex: Female

DRUGS (8)
  1. AVASTIN [Suspect]
     Indication: RETINAL VEIN OCCLUSION
     Route: 050
     Dates: start: 2009, end: 20131106
  2. AVASTIN [Suspect]
     Route: 050
     Dates: start: 20091106
  3. LUCENTIS [Suspect]
     Indication: PRODUCT USED FOR UNKNOWN INDICATION
     Route: 065
  4. CLARITIN [Concomitant]
  5. PREMARIN [Concomitant]
  6. FLONASE [Concomitant]
  7. LISINOPRIL [Concomitant]
  8. ASA [Concomitant]

REACTIONS (1)
  - Cerebrovascular accident [Recovered/Resolved]
